FAERS Safety Report 6258491-X (Version None)
Quarter: 2009Q3

REPORT INFORMATION
  Report Type: 
  Country: None (occurrence: None)
  Receive Date: 20090707
  Receipt Date: 20090630
  Transmission Date: 20100115
  Serious: Yes (Other)
  Sender: FDA-Public Use
  Company Number: US-ASTRAZENECA-2009UW07915

PATIENT
  Age: 85 Year
  Sex: Female

DRUGS (1)
  1. ARIMIDEX [Suspect]
     Indication: PROPHYLAXIS
     Route: 048
     Dates: start: 20090224

REACTIONS (8)
  - ASTHENIA [None]
  - CONSTIPATION [None]
  - CYST [None]
  - DIARRHOEA [None]
  - FALL [None]
  - NAUSEA [None]
  - NEOPLASM MALIGNANT [None]
  - PLEURAL EFFUSION [None]
